FAERS Safety Report 4346387-X (Version None)
Quarter: 2004Q2

REPORT INFORMATION
  Report Type: 
  Country: None (occurrence: None)
  Receive Date: 20040426
  Receipt Date: 20030925
  Transmission Date: 20050107
  Serious: No
  Sender: FDA-Public Use
  Company Number: US-GLAXOSMITHKLINE-A0427541A

PATIENT
  Age: 10 Month
  Sex: Male

DRUGS (2)
  1. ZOFRAN [Suspect]
     Indication: PROPHYLAXIS OF NAUSEA AND VOMITING
     Dosage: 4MG TWICE PER DAY
     Dates: start: 20030901, end: 20030924
  2. NONE [Concomitant]

REACTIONS (5)
  - CRYING [None]
  - DRUG EXPOSURE VIA BREAST MILK [None]
  - INSOMNIA [None]
  - IRRITABILITY [None]
  - SLUGGISHNESS [None]
